FAERS Safety Report 5701662-9 (Version None)
Quarter: 2008Q2

REPORT INFORMATION
  Report Type: 
  Country: None (occurrence: None)
  Receive Date: 20080411
  Receipt Date: 20080402
  Transmission Date: 20081010
  Serious: Yes (Other)
  Sender: FDA-Public Use
  Company Number: GB-RANBAXY-2008RR-14209

PATIENT

DRUGS (3)
  1. SIMVASTATIN [Suspect]
     Indication: PROPHYLAXIS
     Dosage: 40 MG, UNK
     Route: 048
     Dates: start: 20080311, end: 20080316
  2. AMLODIPINE [Concomitant]
     Indication: HYPERTENSION
     Dosage: 10 MG, UNK
     Route: 048
     Dates: start: 20071224, end: 20080311
  3. ASPIRIN [Concomitant]
     Dosage: 75 MG, UNK
     Route: 048
     Dates: start: 20080311

REACTIONS (4)
  - CHEST DISCOMFORT [None]
  - DIZZINESS [None]
  - DYSPNOEA [None]
  - MYALGIA [None]
